FAERS Safety Report 25555741 (Version 2)
Quarter: 2025Q3

REPORT INFORMATION
  Report Type: Spontaneous
  Country: EU (occurrence: EU)
  Receive Date: 20250715
  Receipt Date: 20250718
  Transmission Date: 20251021
  Serious: Yes (Death, Other)
  Sender: Vantive US Healthcare
  Company Number: EU-VANTIVE-2025VAN003060

PATIENT
  Sex: Male

DRUGS (1)
  1. EXTRANEAL [Suspect]
     Active Substance: CALCIUM CHLORIDE\ICODEXTRIN\MAGNESIUM CHLORIDE\SODIUM CHLORIDE\SODIUM LACTATE
     Route: 033

REACTIONS (9)
  - Death [Fatal]
  - Septic shock [Recovering/Resolving]
  - Escherichia bacteraemia [Recovering/Resolving]
  - Thrombophlebitis septic [Recovering/Resolving]
  - Cardiac failure acute [Recovering/Resolving]
  - Anuria [Recovering/Resolving]
  - Hypersensitivity [Unknown]
  - Respiratory disorder [Recovering/Resolving]
  - Condition aggravated [Recovering/Resolving]
